FAERS Safety Report 18409391 (Version 1)
Quarter: 2020Q4

REPORT INFORMATION
  Report Type: Spontaneous
  Country: DE (occurrence: DE)
  Receive Date: 20201021
  Receipt Date: 20201021
  Transmission Date: 20210114
  Serious: Yes (Other)
  Sender: FDA-Public Use
  Company Number: DE-TEVA-2020-DE-1839742

PATIENT
  Age: 54 Year
  Sex: Female
  Weight: 85 kg

DRUGS (7)
  1. KALIUMBROMID DESITIN [Concomitant]
  2. LORATADIN [Concomitant]
     Active Substance: LORATADINE
     Indication: HYPERSENSITIVITY
  3. CARBAMAZEPIN RETARD 300 [Suspect]
     Active Substance: CARBAMAZEPINE
     Indication: EPILEPSY
     Dosage: 600 MILLIGRAM DAILY;
     Route: 048
     Dates: start: 1995, end: 2020
  4. CLOPIDOGREL [Concomitant]
     Active Substance: CLOPIDOGREL BISULFATE
     Indication: TRANSIENT ISCHAEMIC ATTACK
     Dosage: IS CURRENTLY NOT TAKEN
  5. FOLSAEURE [Concomitant]
     Active Substance: FOLIC ACID
  6. PETINUTIN 300 MG [Concomitant]
  7. VITAMIN D [Concomitant]
     Active Substance: VITAMIN D NOS

REACTIONS (14)
  - Hepatomegaly [Recovered/Resolved with Sequelae]
  - Blood calcium decreased [Not Recovered/Not Resolved]
  - Adrenal disorder [Recovered/Resolved with Sequelae]
  - Blood sodium decreased [Not Recovered/Not Resolved]
  - Fatigue [Recovered/Resolved]
  - Hypothalamo-pituitary disorder [Recovered/Resolved with Sequelae]
  - Metabolic disorder [Unknown]
  - Renal impairment [Recovered/Resolved with Sequelae]
  - Tooth disorder [Unknown]
  - Cardiovascular disorder [Unknown]
  - Depression [Unknown]
  - Thyroid function test abnormal [Recovered/Resolved with Sequelae]
  - Skin disorder [Unknown]
  - Cardiomegaly [Recovered/Resolved with Sequelae]

NARRATIVE: CASE EVENT DATE: 2005
